FAERS Safety Report 16530070 (Version 4)
Quarter: 2019Q3

REPORT INFORMATION
  Report Type: Spontaneous
  Country: US (occurrence: US)
  Receive Date: 20190704
  Receipt Date: 20190725
  Transmission Date: 20191004
  Serious: Yes (Hospitalization, Other)
  Sender: FDA-Public Use
  Company Number: PHEH2019US027851

PATIENT
  Age: 76 Year
  Sex: Male

DRUGS (3)
  1. AFINITOR [Suspect]
     Active Substance: EVEROLIMUS
     Indication: MALIGNANT NEOPLASM OF RENAL PELVIS
     Dosage: 10 MG, QD
     Route: 048
     Dates: end: 20190708
  2. LENVATINIB [Suspect]
     Active Substance: LENVATINIB
     Indication: MALIGNANT NEOPLASM OF RENAL PELVIS
     Dosage: 18 MG, QD
     Route: 048
     Dates: start: 20190618, end: 20190708
  3. AFINITOR [Suspect]
     Active Substance: EVEROLIMUS
     Dosage: UNK, QD
     Route: 048

REACTIONS (20)
  - Abdominal discomfort [Unknown]
  - Decreased appetite [Unknown]
  - Dysphagia [Unknown]
  - Fatigue [Unknown]
  - Feeling abnormal [Unknown]
  - Chills [Unknown]
  - Dysuria [Unknown]
  - Rash generalised [Unknown]
  - Asthenia [Unknown]
  - Pain in extremity [Unknown]
  - Diarrhoea [Unknown]
  - Nonspecific reaction [Unknown]
  - Joint swelling [Unknown]
  - Lung neoplasm [Unknown]
  - Blood pressure increased [Recovered/Resolved]
  - Feeling hot [Unknown]
  - Abdominal pain upper [Unknown]
  - Muscular weakness [Unknown]
  - Epistaxis [Unknown]
  - Abdominal pain [Unknown]

NARRATIVE: CASE EVENT DATE: 20190628
